FAERS Safety Report 8581126-8 (Version None)
Quarter: 2012Q3

REPORT INFORMATION
  Report Type: 
  Country: None (occurrence: None)
  Receive Date: 20120809
  Receipt Date: 20120731
  Transmission Date: 20120928
  Serious: Yes (Other)
  Sender: FDA-Public Use
  Company Number: US-JNJFOC-20120801973

PATIENT
  Sex: Female

DRUGS (4)
  1. PACLITAXEL [Suspect]
     Indication: ENDOMETRIAL CANCER
     Dosage: ON DAY 2
     Route: 065
  2. CISPLATIN [Suspect]
     Indication: ENDOMETRIAL CANCER
     Dosage: ON DAY 1
     Route: 065
  3. GROWTH HORMONE [Concomitant]
     Indication: PALLIATIVE CARE
     Route: 065
  4. DOXORUBICIN HYDROCHLORIDE [Suspect]
     Indication: ENDOMETRIAL CANCER
     Dosage: ON DAY 1
     Route: 042

REACTIONS (8)
  - VOMITING [None]
  - HAEMATOTOXICITY [None]
  - TOXICITY TO VARIOUS AGENTS [None]
  - DIARRHOEA [None]
  - PERIPHERAL SENSORY NEUROPATHY [None]
  - THROMBOCYTOPENIA [None]
  - FEBRILE NEUTROPENIA [None]
  - NEUTROPENIA [None]
